FAERS Safety Report 20130274 (Version 1)
Quarter: 2021Q4

REPORT INFORMATION
  Report Type: Spontaneous
  Country: US (occurrence: None)
  Receive Date: 20211129
  Receipt Date: 20211129
  Transmission Date: 20220303
  Serious: Yes (Death)
  Sender: FDA-Public Use
  Company Number: None

PATIENT
  Age: 50 Year
  Sex: Female
  Weight: 123 kg

DRUGS (7)
  1. INVEGA SUSTENNA [Suspect]
     Active Substance: PALIPERIDONE PALMITATE
     Indication: Schizoaffective disorder
     Dosage: OTHER FREQUENCY : ONE TIME;?
     Route: 030
     Dates: start: 20211119
  2. carbamazepine 600 mg twice daily [Concomitant]
     Dates: start: 20211111, end: 20211124
  3. chlorpromazine 100 mg 4xdaily [Concomitant]
     Dates: start: 20211022, end: 20211124
  4. Lantus Insulin 20 units subcut at bedtime [Concomitant]
     Dates: start: 20211015, end: 20211124
  5. lisinopril 40 mg daily (home med) [Concomitant]
     Dates: start: 20211013, end: 20211124
  6. metformin 1000 mg twice daily (home med) [Concomitant]
     Dates: start: 20211013, end: 20211124
  7. metoprolol 100 mg twice daily (home med) [Concomitant]
     Dates: start: 20211013, end: 20211124

REACTIONS (1)
  - Death [None]

NARRATIVE: CASE EVENT DATE: 20211124
